FAERS Safety Report 6253265-8 (Version None)
Quarter: 2009Q3

REPORT INFORMATION
  Report Type: 
  Country: None (occurrence: None)
  Receive Date: 20090701
  Receipt Date: 20090625
  Transmission Date: 20100115
  Serious: Yes (Other)
  Sender: FDA-Public Use
  Company Number: US-ASTRAZENECA-2009UW17577

PATIENT
  Age: 54 Year
  Sex: Male
  Weight: 104.3 kg

DRUGS (9)
  1. CRESTOR [Suspect]
     Route: 048
     Dates: start: 20080101
  2. PROTONIX [Concomitant]
  3. LISINOPRIL [Concomitant]
  4. SINGULAIR [Concomitant]
     Route: 065
  5. CLONAZEPAM [Concomitant]
     Route: 065
  6. PRISTIQ [Concomitant]
     Route: 065
  7. OXYCONTIN [Concomitant]
     Route: 065
  8. BACLOFEN [Concomitant]
     Route: 065
  9. LAMOTRIGINE [Concomitant]
     Route: 065

REACTIONS (2)
  - NEUROPATHY PERIPHERAL [None]
  - SURGERY [None]
